FAERS Safety Report 6636946-3 (Version None)
Quarter: 2010Q1

REPORT INFORMATION
  Report Type: 
  Country: None (occurrence: None)
  Receive Date: 20100301
  Receipt Date: 20090626
  Transmission Date: 20100710
  Serious: Yes (Other)
  Sender: FDA-Public Use
  Company Number: DSA_33921_2009

PATIENT
  Sex: Male

DRUGS (3)
  1. CARDIZEM CD [Suspect]
     Indication: DRUG USE FOR UNKNOWN INDICATION
     Dosage: (120 MG QD)
     Dates: start: 20081001
  2. ZESTORETIC [Concomitant]
  3. TOPROL-XL [Concomitant]

REACTIONS (6)
  - ALOPECIA [None]
  - BLOOD PRESSURE DECREASED [None]
  - FLUSHING [None]
  - HEADACHE [None]
  - HEART RATE IRREGULAR [None]
  - INSOMNIA [None]
